FAERS Safety Report 6234301-1 (Version None)
Quarter: 2009Q2

REPORT INFORMATION
  Report Type: 
  Country: None (occurrence: None)
  Receive Date: 20090618
  Receipt Date: 20090610
  Transmission Date: 20091009
  Serious: Yes (Other)
  Sender: FDA-Public Use
  Company Number: US-JNJFOC-20090603928

PATIENT
  Sex: Female
  Weight: 78.47 kg

DRUGS (2)
  1. TOPAMAX [Suspect]
     Indication: MIGRAINE PROPHYLAXIS
     Route: 048
  2. VALIUM [Concomitant]
     Indication: FEELING OF RELAXATION
     Route: 048

REACTIONS (2)
  - HALLUCINATION, VISUAL [None]
  - THERAPEUTIC RESPONSE UNEXPECTED [None]
